FAERS Safety Report 8460017-7 (Version None)
Quarter: 2012Q2

REPORT INFORMATION
  Report Type: 
  Country: None (occurrence: None)
  Receive Date: 20120622
  Receipt Date: 20120619
  Transmission Date: 20120825
  Serious: Yes (Disabling, Other)
  Sender: FDA-Public Use
  Company Number: PHHY2012GB052401

PATIENT
  Age: 35 Year
  Sex: Male
  Weight: 86 kg

DRUGS (3)
  1. TRAMADOL HCL [Suspect]
     Indication: ABDOMINAL PAIN
     Dosage: 100 MG, TID
     Route: 048
     Dates: start: 20111117, end: 20120521
  2. RANITIDINE [Concomitant]
     Indication: DYSPEPSIA
     Dosage: 150 MG, BID
     Route: 048
     Dates: start: 20110929, end: 20111027
  3. MEPERIDINE HCL [Concomitant]
     Indication: PAIN
     Route: 048
     Dates: end: 20111117

REACTIONS (2)
  - DYSKINESIA [None]
  - SLEEP DISORDER [None]
